FAERS Safety Report 9383491 (Version 3)
Quarter: 2013Q3

REPORT INFORMATION
  Report Type: Spontaneous
  Country: JP (occurrence: JP)
  Receive Date: 20130704
  Receipt Date: 20130827
  Transmission Date: 20140515
  Serious: Yes (Other)
  Sender: FDA-Public Use
  Company Number: JP-PFIZER INC-2013193036

PATIENT
  Age: 85 Year
  Sex: Female

DRUGS (3)
  1. XALATAN [Suspect]
     Indication: GLAUCOMA
     Dosage: 1 GTT, 1X/DAY
     Route: 047
     Dates: start: 20130314, end: 20130513
  2. AIPHAGAN [Suspect]
     Indication: GLAUCOMA
     Dosage: 2 DROPS PER DAY
     Route: 047
     Dates: start: 20130425, end: 20130513
  3. DIQUAS [Concomitant]
     Indication: DRY EYE
     Dosage: UNK
     Route: 047
     Dates: start: 20130301, end: 20130513

REACTIONS (1)
  - Keratitis [Recovered/Resolved]
